FAERS Safety Report 7324208-0 (Version None)
Quarter: 2011Q1

REPORT INFORMATION
  Report Type: 
  Country: None (occurrence: None)
  Receive Date: 20110301
  Receipt Date: 20110223
  Transmission Date: 20110831
  Serious: Yes (Life-Threatening)
  Sender: FDA-Public Use
  Company Number: GB-PFIZER INC-2011037401

PATIENT
  Age: 62 Year
  Sex: Male

DRUGS (1)
  1. CELECOXIB [Suspect]
     Indication: RHEUMATOID ARTHRITIS
     Dosage: 100 MG, 2X/DAY
     Route: 048
     Dates: start: 20090619, end: 20101209

REACTIONS (3)
  - METASTASES TO LIVER [None]
  - LUNG CANCER METASTATIC [None]
  - METASTASES TO BONE [None]
